FAERS Safety Report 17986976 (Version 2)
Quarter: 2020Q3

REPORT INFORMATION
  Report Type: Report from Study
  Country: GB (occurrence: GB)
  Receive Date: 20200707
  Receipt Date: 20200714
  Transmission Date: 20201103
  Serious: Yes (Other)
  Sender: FDA-Public Use
  Company Number: GB-AUROBINDO-AUR-APL-2020-032302

PATIENT
  Age: 63 Year
  Sex: Female

DRUGS (12)
  1. ALEMTUZUMAB [Suspect]
     Active Substance: ALEMTUZUMAB
     Indication: IMMUNOSUPPRESSANT DRUG THERAPY
     Dosage: UNK
     Route: 065
  2. CYCLOSPORIN [Suspect]
     Active Substance: CYCLOSPORINE
     Indication: GRAFT VERSUS HOST DISEASE
     Dosage: 3 MILLIGRAM/KILOGRAM, ONCE A DAY, (STARTING ON DAY 1)
     Route: 042
  3. ACICLOVIR [Suspect]
     Active Substance: ACYCLOVIR
     Indication: ANTIVIRAL PROPHYLAXIS
  4. MELPHALAN. [Suspect]
     Active Substance: MELPHALAN
     Indication: IMMUNOSUPPRESSANT DRUG THERAPY
     Dosage: 140 MILLIGRAM/SQ. METER
     Route: 065
  5. CYTARABINE. [Suspect]
     Active Substance: CYTARABINE
     Indication: IMMUNOSUPPRESSANT DRUG THERAPY
     Dosage: UNK
     Route: 065
  6. ACICLOVIR [Suspect]
     Active Substance: ACYCLOVIR
     Indication: HERPES SIMPLEX
     Dosage: 400 MILLIGRAM, TWO TIMES A DAY
     Route: 048
  7. CIDOFOVIR. [Suspect]
     Active Substance: CIDOFOVIR
     Indication: HERPES SIMPLEX
     Dosage: UNK
     Route: 061
  8. FOSCARNET [Suspect]
     Active Substance: FOSCARNET
     Indication: HERPES SIMPLEX
     Dosage: UNK
     Route: 065
  9. CYCLOSPORIN [Suspect]
     Active Substance: CYCLOSPORINE
     Indication: PROPHYLAXIS AGAINST GRAFT VERSUS HOST DISEASE
  10. ETOPOSIDE. [Suspect]
     Active Substance: ETOPOSIDE
     Indication: IMMUNOSUPPRESSANT DRUG THERAPY
     Dosage: UNK
     Route: 065
  11. CARMUSTINE. [Suspect]
     Active Substance: CARMUSTINE
     Indication: IMMUNOSUPPRESSANT DRUG THERAPY
     Dosage: UNK
     Route: 065
  12. CIDOFOVIR. [Suspect]
     Active Substance: CIDOFOVIR
     Indication: HERPES SIMPLEX
     Dosage: UNK
     Route: 061

REACTIONS (10)
  - Nasal mucosal ulcer [Recovered/Resolved]
  - Hyperkalaemia [Unknown]
  - Pathogen resistance [Unknown]
  - Off label use [Unknown]
  - Ulcer haemorrhage [Recovered/Resolved]
  - Herpes simplex [Recovered/Resolved]
  - Stomatitis [Recovered/Resolved]
  - Renal impairment [Unknown]
  - Drug resistance [Unknown]
  - Vomiting [Unknown]
